FAERS Safety Report 4576062-8 (Version None)
Quarter: 2005Q1

REPORT INFORMATION
  Report Type: 
  Country: None (occurrence: None)
  Receive Date: 20050201
  Receipt Date: 20050201
  Transmission Date: 20050727
  Serious: Yes (Other)
  Sender: FDA-Public Use
  Company Number: None

PATIENT
  Sex: Male
  Weight: 82.1011 kg

DRUGS (2)
  1. CITALOPRAM   20 MG. TABS   ALPHARMA-PUREPAC [Suspect]
     Indication: MAJOR DEPRESSION
     Dosage: 20 MG.   EACH MORNING  ORAL
     Route: 048
     Dates: start: 20041211, end: 20041231
  2. CITALOPRAM   20 MG. TABS   ALPHARMA-PUREPAC [Suspect]
     Indication: MAJOR DEPRESSION
     Dosage: 20 MG.   EACH MORNING   ORAL
     Route: 048
     Dates: start: 20050112, end: 20050114

REACTIONS (5)
  - CONDITION AGGRAVATED [None]
  - DEPRESSION [None]
  - DRUG INEFFECTIVE [None]
  - DYSPEPSIA [None]
  - PHARMACEUTICAL PRODUCT COMPLAINT [None]
